FAERS Safety Report 14772981 (Version 1)
Quarter: 2018Q2

REPORT INFORMATION
  Report Type: Spontaneous
  Country: FR (occurrence: FR)
  Receive Date: 20180418
  Receipt Date: 20180418
  Transmission Date: 20180711
  Serious: Yes (Other)
  Sender: FDA-Public Use
  Company Number: FR-MERCK KGAA-2045921

PATIENT
  Age: 54 Year
  Sex: Female

DRUGS (1)
  1. NOVOTHYROX [Suspect]
     Active Substance: LEVOTHYROXINE SODIUM
     Indication: POST PROCEDURAL HYPOTHYROIDISM
     Dates: start: 201706

REACTIONS (16)
  - Mood swings [Recovering/Resolving]
  - Gait disturbance [Recovering/Resolving]
  - Depressed mood [Recovering/Resolving]
  - Feeling of despair [Recovering/Resolving]
  - Bedridden [Recovering/Resolving]
  - Confusional state [Recovering/Resolving]
  - Suicidal ideation [Recovering/Resolving]
  - Fatigue [Recovering/Resolving]
  - Aggression [Recovering/Resolving]
  - Thyroxine decreased [Recovering/Resolving]
  - Asthenia [Recovering/Resolving]
  - Pain [Recovering/Resolving]
  - Muscle spasms [Recovering/Resolving]
  - Weight increased [Recovering/Resolving]
  - Asocial behaviour [Recovering/Resolving]
  - Tri-iodothyronine decreased [Recovering/Resolving]

NARRATIVE: CASE EVENT DATE: 20170821
